FAERS Safety Report 5830706-9 (Version None)
Quarter: 2008Q3

REPORT INFORMATION
  Report Type: 
  Country: None (occurrence: None)
  Receive Date: 20080801
  Receipt Date: 20071016
  Transmission Date: 20090109
  Serious: Yes (Other)
  Sender: FDA-Public Use
  Company Number: US-BRISTOL-MYERS SQUIBB COMPANY-13944210

PATIENT
  Age: 89 Year
  Sex: Female

DRUGS (5)
  1. COUMADIN [Suspect]
  2. PROCRIT [Suspect]
     Indication: ANAEMIA
  3. COREG [Concomitant]
  4. AVALIDE [Concomitant]
  5. LASIX [Concomitant]

REACTIONS (2)
  - INCREASED TENDENCY TO BRUISE [None]
  - THERAPEUTIC RESPONSE DECREASED [None]
